FAERS Safety Report 23202563 (Version 1)
Quarter: 2023Q4

REPORT INFORMATION
  Report Type: Report from Study
  Country: US (occurrence: US)
  Receive Date: 20231120
  Receipt Date: 20231120
  Transmission Date: 20240110
  Serious: Yes (Death, Other)
  Sender: FDA-Public Use
  Company Number: US-GILEAD-2023-0651670

PATIENT
  Sex: Male

DRUGS (2)
  1. AZTREONAM LYSINE [Suspect]
     Active Substance: AZTREONAM LYSINE
     Indication: Cystic fibrosis
     Dosage: 75 MG, BID (SOLN 84^S; VIA ALTERA NEBULIZER, USE WITH ALTERA NEBULIZER SYSTEM ONLY. ALTERNATE EVERY
     Route: 055
  2. TOBI [Concomitant]
     Active Substance: TOBRAMYCIN

REACTIONS (2)
  - Death [Fatal]
  - Off label use [Unknown]
